FAERS Safety Report 9186243 (Version 7)
Quarter: 2014Q1

REPORT INFORMATION
  Report Type: Report from Study
  Country: JP (occurrence: JP)
  Receive Date: 20130325
  Receipt Date: 20140317
  Transmission Date: 20141002
  Serious: Yes (Hospitalization)
  Sender: FDA-Public Use
  Company Number: JP-GLAXOSMITHKLINE-B0861263C

PATIENT
  Age: 70 Year
  Sex: Female
  Weight: 30 kg

DRUGS (11)
  1. FLUTICASONE FUROATE [Suspect]
     Indication: CHRONIC OBSTRUCTIVE PULMONARY DISEASE
     Dates: start: 20120919, end: 20130223
  2. FUROSEMIDE [Concomitant]
     Indication: OEDEMA PERIPHERAL
     Dosage: 10MG THREE TIMES PER DAY
     Route: 048
     Dates: start: 20130117
  3. SPIRONOLACTONE [Concomitant]
     Indication: OEDEMA PERIPHERAL
     Dosage: 25MG THREE TIMES PER DAY
     Route: 048
     Dates: start: 20130117
  4. BERAPROST SODIUM [Concomitant]
     Indication: OEDEMA PERIPHERAL
     Dosage: 20MCG THREE TIMES PER DAY
     Route: 048
     Dates: start: 20130117
  5. PREDNISOLONE [Concomitant]
     Indication: CHRONIC OBSTRUCTIVE PULMONARY DISEASE
     Dosage: 5MG PER DAY
     Route: 048
     Dates: start: 20130117, end: 20130121
  6. SALBUTAMOL SULPHATE [Concomitant]
     Indication: CHRONIC OBSTRUCTIVE PULMONARY DISEASE
     Route: 055
     Dates: start: 20120828
  7. EXFORGE [Concomitant]
     Indication: HYPERTENSION
     Route: 048
     Dates: start: 20110217
  8. ASPIRIN [Concomitant]
     Indication: CEREBRAL INFARCTION
     Dosage: 100MG PER DAY
     Route: 048
     Dates: start: 20050428
  9. URSODEOXYCHOLIC ACID [Concomitant]
     Indication: CHOLELITHIASIS
     Dosage: 100MG THREE TIMES PER DAY
     Route: 048
     Dates: start: 20071009
  10. METHYLDIGOXIN [Concomitant]
     Indication: SINUS TACHYCARDIA
     Dosage: .1MG PER DAY
     Route: 048
     Dates: start: 20041014
  11. KETOPROFEN [Concomitant]
     Indication: MYALGIA
     Route: 062
     Dates: start: 201204

REACTIONS (1)
  - Pneumonia [Not Recovered/Not Resolved]
